FAERS Safety Report 10461960 (Version 1)
Quarter: 2014Q3

REPORT INFORMATION
  Report Type: Spontaneous
  Country: US (occurrence: None)
  Receive Date: 20140917
  Receipt Date: 20140917
  Transmission Date: 20150326
  Serious: Yes (Other)
  Sender: FDA-Public Use
  Company Number: None

PATIENT
  Age: 37 Year
  Sex: Male
  Weight: 68.49 kg

DRUGS (1)
  1. OTEZLA [Suspect]
     Active Substance: APREMILAST
     Indication: PSORIATIC ARTHROPATHY
     Route: 048
     Dates: start: 20140710, end: 20140910

REACTIONS (18)
  - Reading disorder [None]
  - Abdominal pain [None]
  - Headache [None]
  - Confusional state [None]
  - Cognitive disorder [None]
  - Impatience [None]
  - Memory impairment [None]
  - Arthralgia [None]
  - Faeces soft [None]
  - Pruritus [None]
  - Aphasia [None]
  - Decreased interest [None]
  - Weight decreased [None]
  - Pain in extremity [None]
  - Retrograde amnesia [None]
  - Decreased activity [None]
  - Thinking abnormal [None]
  - Malaise [None]

NARRATIVE: CASE EVENT DATE: 20140910
